FAERS Safety Report 8310982-3 (Version None)
Quarter: 2012Q2

REPORT INFORMATION
  Report Type: 
  Country: None (occurrence: None)
  Receive Date: 20120425
  Receipt Date: 20120418
  Transmission Date: 20120825
  Serious: No
  Sender: FDA-Public Use
  Company Number: US-BIOGENIDEC-2012BI013537

PATIENT
  Age: 46 Year
  Sex: Female

DRUGS (5)
  1. TYSABRI [Suspect]
     Indication: MULTIPLE SCLEROSIS
     Route: 042
     Dates: start: 20080513, end: 20081202
  2. TYSABRI [Suspect]
     Route: 042
     Dates: start: 20090827, end: 20100527
  3. TYSABRI [Suspect]
     Route: 042
  4. AVONEX [Concomitant]
     Route: 030
     Dates: start: 20111209
  5. AVONEX [Concomitant]
     Indication: MULTIPLE SCLEROSIS
     Route: 030
     Dates: start: 20070412, end: 20080420

REACTIONS (2)
  - INFUSION SITE ERYTHEMA [None]
  - HERPES ZOSTER [None]
